FAERS Safety Report 18061672 (Version 3)
Quarter: 2020Q4

REPORT INFORMATION
  Report Type: Report from Study
  Country: US (occurrence: US)
  Receive Date: 20200723
  Receipt Date: 20201221
  Transmission Date: 20210113
  Serious: Yes (Other)
  Sender: FDA-Public Use
  Company Number: NVSC2020US205674

PATIENT
  Age: 50 Year
  Sex: Male

DRUGS (1)
  1. COSENTYX [Suspect]
     Active Substance: SECUKINUMAB
     Indication: PSORIASIS
     Dosage: 300 MG, QMO
     Route: 058
     Dates: start: 20180101, end: 20200301

REACTIONS (2)
  - Psoriasis [Unknown]
  - COVID-19 [Unknown]

NARRATIVE: CASE EVENT DATE: 202003
